FAERS Safety Report 16937781 (Version 2)
Quarter: 2019Q4

REPORT INFORMATION
  Report Type: Spontaneous
  Country: US (occurrence: US)
  Receive Date: 20191018
  Receipt Date: 20191114
  Transmission Date: 20200122
  Serious: No
  Sender: FDA-Public Use
  Company Number: US-TEVA-2019-US-1123269

PATIENT
  Sex: Female

DRUGS (9)
  1. GABAPENTIN. [Concomitant]
     Active Substance: GABAPENTIN
  2. CALCIUM/D [Concomitant]
  3. FLAXSEED [Concomitant]
     Active Substance: FLAX SEED
  4. VITAMIN D [Concomitant]
     Active Substance: VITAMIN D NOS
  5. DULOXETINE. [Concomitant]
     Active Substance: DULOXETINE
  6. VITAMIN C [Concomitant]
     Active Substance: ASCORBIC ACID
  7. COPAXONE [Suspect]
     Active Substance: GLATIRAMER ACETATE
     Indication: MULTIPLE SCLEROSIS
     Dosage: 20 MILLIGRAM DAILY;
     Route: 058
     Dates: start: 20150611
  8. FISH OIL [Concomitant]
     Active Substance: FISH OIL
  9. OXCARBAZEPIN [Concomitant]
     Active Substance: OXCARBAZEPINE

REACTIONS (1)
  - Injection site mass [Not Recovered/Not Resolved]
